FAERS Safety Report 21706693 (Version 1)
Quarter: 2022Q4

REPORT INFORMATION
  Report Type: Spontaneous
  Country: US (occurrence: None)
  Receive Date: 20221209
  Receipt Date: 20221209
  Transmission Date: 20230112
  Serious: No
  Sender: FDA-Public Use
  Company Number: 2022A365499

PATIENT
  Age: 23564 Day
  Sex: Female
  Weight: 72.6 kg

DRUGS (4)
  1. TEZSPIRE [Suspect]
     Active Substance: TEZEPELUMAB-EKKO
     Indication: Asthma
     Route: 058
     Dates: start: 20220415, end: 20221017
  2. BREZTRI [Suspect]
     Active Substance: BUDESONIDE\FORMOTEROL\GLYCOPYRROLATE
     Indication: Asthma
     Dosage: 160/ 4.8/9
     Route: 055
     Dates: start: 20210808
  3. DULOXETINE [Concomitant]
     Active Substance: DULOXETINE
  4. NORVASE [Concomitant]

REACTIONS (7)
  - Red blood cell sedimentation rate increased [Unknown]
  - Arthralgia [Recovered/Resolved]
  - Influenza virus test positive [Unknown]
  - C-reactive protein increased [Unknown]
  - Blood creatine phosphokinase increased [Unknown]
  - Platelet count increased [Unknown]
  - Anaemia [Unknown]

NARRATIVE: CASE EVENT DATE: 20220917
